FAERS Safety Report 5367407-X (Version None)
Quarter: 2007Q2

REPORT INFORMATION
  Report Type: 
  Country: None (occurrence: None)
  Receive Date: 20070622
  Receipt Date: 20060619
  Transmission Date: 20071010
  Serious: No
  Sender: FDA-Public Use
  Company Number: US-ASTRAZENECA-2006UW13097

PATIENT

DRUGS (1)
  1. PULMICORT [Suspect]
     Route: 055
     Dates: start: 20060501

REACTIONS (2)
  - ILL-DEFINED DISORDER [None]
  - MOVEMENT DISORDER [None]
